FAERS Safety Report 5125099-9 (Version None)
Quarter: 2006Q4

REPORT INFORMATION
  Report Type: 
  Country: None (occurrence: None)
  Receive Date: 20061010
  Receipt Date: 20061010
  Transmission Date: 20070319
  Serious: Yes (Hospitalization)
  Sender: FDA-Public Use
  Company Number: None

PATIENT
  Age: 73 Year
  Sex: Male

DRUGS (9)
  1. DILTIAZEM SR [Suspect]
     Indication: HYPERTENSION
     Dosage: 240 MG BID
     Dates: start: 19980401
  2. ATENOLOL [Suspect]
     Indication: HYPERTENSION
     Dosage: 25 MG QHS
     Dates: start: 20050101
  3. FOSINOPRIL SODIUM [Concomitant]
  4. IBUPROFEN [Concomitant]
  5. ACARBOSE [Concomitant]
  6. TERAZOSIN HCL [Concomitant]
  7. FLUVASTATIN [Concomitant]
  8. METFORMIN HCL [Concomitant]
  9. HYDROCHLOROTHIAZIDE [Concomitant]

REACTIONS (4)
  - BRADYCARDIA [None]
  - DIZZINESS [None]
  - HYPOTENSION [None]
  - NAUSEA [None]
